FAERS Safety Report 7999235-0 (Version None)
Quarter: 2011Q4

REPORT INFORMATION
  Report Type: 
  Country: None (occurrence: None)
  Receive Date: 20111221
  Receipt Date: 20111215
  Transmission Date: 20120403
  Serious: Yes (Other)
  Sender: FDA-Public Use
  Company Number: US-ASTRAZENECA-2010SE07748

PATIENT
  Age: 91 Year
  Sex: Female

DRUGS (2)
  1. NEXIUM [Suspect]
     Route: 048
     Dates: start: 20070101
  2. NEXIUM [Suspect]
     Route: 048

REACTIONS (20)
  - DRY SKIN [None]
  - PANCREATIC ENZYMES INCREASED [None]
  - DRY MOUTH [None]
  - FEELING OF BODY TEMPERATURE CHANGE [None]
  - GASTRIC DISORDER [None]
  - THROAT IRRITATION [None]
  - ADVERSE DRUG REACTION [None]
  - POLYURIA [None]
  - RASH [None]
  - ARTHRALGIA [None]
  - LIMB CRUSHING INJURY [None]
  - ORTHOSTATIC HYPOTENSION [None]
  - DIZZINESS [None]
  - ROAD TRAFFIC ACCIDENT [None]
  - FLUSHING [None]
  - HEART RATE INCREASED [None]
  - INCORRECT DRUG ADMINISTRATION DURATION [None]
  - LYMPHOMA [None]
  - BLOOD PRESSURE INCREASED [None]
  - DEPRESSION [None]
